FAERS Safety Report 6391096-9 (Version None)
Quarter: 2009Q4

REPORT INFORMATION
  Report Type: 
  Country: None (occurrence: None)
  Receive Date: 20091006
  Receipt Date: 20091006
  Transmission Date: 20100525
  Serious: Yes (Life-Threatening, Hospitalization)
  Sender: FDA-Public Use
  Company Number: None

PATIENT
  Age: 43 Year
  Sex: Female
  Weight: 73.5 kg

DRUGS (1)
  1. LAMOTRIGINE [Suspect]
     Indication: POST-TRAUMATIC STRESS DISORDER
     Dosage: 150 MG EVERY DAY PO
     Route: 048
     Dates: start: 20080912, end: 20090904

REACTIONS (6)
  - CONJUNCTIVITIS BACTERIAL [None]
  - DYSURIA [None]
  - ERYTHEMA MULTIFORME [None]
  - HERPES SIMPLEX [None]
  - ORAL HERPES [None]
  - STEVENS-JOHNSON SYNDROME [None]
